FAERS Safety Report 4923168-7 (Version None)
Quarter: 2006Q1

REPORT INFORMATION
  Report Type: 
  Country: None (occurrence: None)
  Receive Date: 20060113
  Receipt Date: 20041230
  Transmission Date: 20060701
  Serious: Yes (Hospitalization, Disabling)
  Sender: FDA-Public Use
  Company Number: HQWYE186916JUL04

PATIENT
  Age: 54 Year
  Sex: Female
  Weight: 47.22 kg

DRUGS (5)
  1. PREMPRO [Suspect]
     Indication: DYSPAREUNIA
     Dosage: ORAL
     Route: 048
     Dates: start: 20010313
  2. PREMPRO [Suspect]
     Indication: HOT FLUSH
     Dosage: ORAL
     Route: 048
     Dates: start: 20010313
  3. PREMPRO [Suspect]
     Indication: MOOD SWINGS
     Dosage: ORAL
     Route: 048
     Dates: start: 20010313
  4. PREMPRO [Suspect]
     Indication: VULVOVAGINAL DRYNESS
     Dosage: ORAL
     Route: 048
     Dates: start: 20010313
  5. FOLIC ACID [Concomitant]

REACTIONS (1)
  - CEREBROVASCULAR ACCIDENT [None]
